FAERS Safety Report 6639329-5 (Version None)
Quarter: 2010Q1

REPORT INFORMATION
  Report Type: 
  Country: None (occurrence: None)
  Receive Date: 20100315
  Receipt Date: 20100301
  Transmission Date: 20100710
  Serious: Yes (Death)
  Sender: FDA-Public Use
  Company Number: KADN20100052

PATIENT
  Age: 5 Year
  Sex: Female

DRUGS (3)
  1. MORPHINE [Suspect]
     Dosage: PER ORAL
     Route: 048
     Dates: end: 20080101
  2. OXYCODONE [Suspect]
     Dosage: PER ORAL
     Route: 048
     Dates: end: 20080101
  3. CLONIDINE [Concomitant]

REACTIONS (10)
  - ANALGESIC DRUG LEVEL ABOVE THERAPEUTIC [None]
  - BLOOD PH DECREASED [None]
  - CARDIO-RESPIRATORY ARREST [None]
  - DRUG TOXICITY [None]
  - PCO2 [None]
  - PCO2 INCREASED [None]
  - PO2 DECREASED [None]
  - PUPIL FIXED [None]
  - VICTIM OF HOMICIDE [None]
  - WHITE BLOOD CELL COUNT INCREASED [None]
